FAERS Safety Report 16858001 (Version 3)
Quarter: 2019Q4

REPORT INFORMATION
  Report Type: Spontaneous
  Country: DK (occurrence: DK)
  Receive Date: 20190926
  Receipt Date: 20191016
  Transmission Date: 20200122
  Serious: Yes (Hospitalization)
  Sender: FDA-Public Use
  Company Number: DK-PFIZER INC-2019409761

PATIENT
  Age: 76 Year
  Sex: Female
  Weight: 74 kg

DRUGS (10)
  1. CEFUROXIME. [Suspect]
     Active Substance: CEFUROXIME
     Dosage: 750 (UNIT UNKNOWN), UNK
     Route: 042
     Dates: start: 20190807, end: 20190809
  2. ONDANSETRON [Suspect]
     Active Substance: ONDANSETRON
     Indication: NAUSEA
     Dosage: 4 (UNIT UNKNOWN), UNK
     Route: 042
     Dates: start: 20190812, end: 20190815
  3. MORPHINE SULFATE. [Suspect]
     Active Substance: MORPHINE SULFATE
     Indication: PAIN
     Dosage: 10 (UNIT UNKNOWN), UNK
     Route: 048
     Dates: start: 20190809, end: 20190812
  4. PANODIL [Suspect]
     Active Substance: ACETAMINOPHEN
     Dosage: 1000 (UNIT UNKNOWN), UNK
     Route: 048
     Dates: start: 20190809, end: 20190816
  5. TAZOBACTAM [Suspect]
     Active Substance: TAZOBACTAM
     Dosage: 1 (UNIT UNKNOWN), UNK
     Route: 042
     Dates: start: 20190809, end: 20190816
  6. AMOXILLIN [Suspect]
     Active Substance: AMOXICILLIN
     Dosage: 1500 (UNIT UNKNOWN), UNK
     Route: 048
     Dates: start: 20190816, end: 20190822
  7. PIPERACILLIN. [Suspect]
     Active Substance: PIPERACILLIN SODIUM
     Dosage: 8 (UNIT UNKNOWN), UNK
     Route: 042
     Dates: start: 20190809, end: 20190816
  8. BERODUAL [Suspect]
     Active Substance: FENOTEROL HYDROBROMIDE\IPRATROPIUM BROMIDE
     Indication: PAIN
     Dosage: 1.25 (UNIT UNKNOWN), UNK
     Route: 055
     Dates: start: 20190810, end: 20190811
  9. FRAGMIN [Suspect]
     Active Substance: DALTEPARIN SODIUM
     Dosage: 5000 (UNIT UNKNOWN), UNK
     Route: 058
     Dates: start: 20190807, end: 20190815
  10. CEFUROXIME. [Suspect]
     Active Substance: CEFUROXIME
     Dosage: 1500 (UNIT UNKNOWN), UNK
     Route: 042
     Dates: start: 20190808, end: 20190808

REACTIONS (2)
  - Intermittent claudication [Recovered/Resolved]
  - Condition aggravated [Recovered/Resolved]

NARRATIVE: CASE EVENT DATE: 20190807
